FAERS Safety Report 6455947-1 (Version None)
Quarter: 2009Q4

REPORT INFORMATION
  Report Type: 
  Country: None (occurrence: None)
  Receive Date: 20091125
  Receipt Date: 20090810
  Transmission Date: 20100525
  Serious: Yes (Other)
  Sender: FDA-Public Use
  Company Number: GB-NOVOPROD-290490

PATIENT

DRUGS (3)
  1. NORDITROPIN [Suspect]
     Indication: HYPOPITUITARISM
     Dosage: .6 UNK, QD
     Dates: start: 20041201, end: 20060401
  2. HYDROCORTISONE [Concomitant]
  3. LEVOTHYROXINE SODIUM [Concomitant]

REACTIONS (3)
  - BREAST MASS [None]
  - CONDITION AGGRAVATED [None]
  - DIABETIC RETINOPATHY [None]
